FAERS Safety Report 9589004 (Version 1)
Quarter: 2013Q4

REPORT INFORMATION
  Report Type: Spontaneous
  Country: US (occurrence: US)
  Receive Date: 20131003
  Receipt Date: 20131003
  Transmission Date: 20140711
  Serious: No
  Sender: FDA-Public Use
  Company Number: US-AMGEN-USASP2012067499

PATIENT
  Sex: Female

DRUGS (9)
  1. ENBREL [Suspect]
     Indication: PRODUCT USED FOR UNKNOWN INDICATION
     Dosage: 25 MG, 2 TIMES/WK
     Route: 058
  2. ORENCIA [Concomitant]
     Dosage: UNK
     Route: 058
  3. ADVAIR [Concomitant]
     Dosage: UNK, 100/50
  4. CYMBALTA [Concomitant]
     Dosage: 20 MG, UNK
  5. MEDROL                             /00049601/ [Concomitant]
     Dosage: 4 MG, UNK
  6. ATENOLOL [Concomitant]
     Dosage: 50 MG, UNK
  7. VITAMIN D                          /00107901/ [Concomitant]
     Dosage: 1000 UNIT, UNK
  8. CENTRUM                            /02217401/ [Concomitant]
     Dosage: UNK
  9. LIPITOR [Concomitant]
     Dosage: 10 MG, UNK

REACTIONS (1)
  - Drug effect decreased [Unknown]
